FAERS Safety Report 9757505 (Version 5)
Quarter: 2014Q2

REPORT INFORMATION
  Report Type: Spontaneous
  Country: US (occurrence: US)
  Receive Date: 20131215
  Receipt Date: 20140430
  Transmission Date: 20141212
  Serious: Yes (Hospitalization, Other)
  Sender: FDA-Public Use
  Company Number: US-JNJFOC-20131204662

PATIENT
  Age: 48 Year
  Sex: Male
  Weight: 83.92 kg

DRUGS (5)
  1. TYLENOL PM [Suspect]
     Indication: PRODUCT USED FOR UNKNOWN INDICATION
     Route: 065
     Dates: start: 20111219, end: 20111223
  2. TYLENOL COLD AND FLU [Suspect]
     Indication: PYREXIA
     Dosage: 4 PER DAY
     Route: 065
     Dates: start: 20111219, end: 20111223
  3. TYLENOL COLD AND FLU [Suspect]
     Indication: PAIN
     Dosage: 4 PER DAY
     Route: 065
     Dates: start: 20111219, end: 20111223
  4. ALCOHOL [Suspect]
     Indication: PRODUCT USED FOR UNKNOWN INDICATION
     Route: 065
  5. ALKA-SELTZER COLD [Concomitant]
     Indication: PRODUCT USED FOR UNKNOWN INDICATION
     Route: 065

REACTIONS (4)
  - Renal failure acute [Unknown]
  - Pancreatitis acute [Unknown]
  - Toxicity to various agents [Unknown]
  - Acute hepatic failure [Recovering/Resolving]
